FAERS Safety Report 6483175-2 (Version None)
Quarter: 2009Q4

REPORT INFORMATION
  Report Type: 
  Country: None (occurrence: None)
  Receive Date: 20091209
  Receipt Date: 20091126
  Transmission Date: 20100525
  Serious: Yes (Death, Hospitalization)
  Sender: FDA-Public Use
  Company Number: JP-AMGEN-US378384

PATIENT
  Sex: Male
  Weight: 90 kg

DRUGS (12)
  1. ENBREL [Suspect]
     Indication: RHEUMATOID ARTHRITIS
     Route: 058
     Dates: start: 20090209, end: 20090418
  2. ENBREL [Suspect]
     Route: 058
     Dates: start: 20090501, end: 20090720
  3. URALYT [Concomitant]
     Route: 048
  4. FOLIAMIN [Concomitant]
     Route: 048
  5. PREDNISONE [Concomitant]
     Dosage: 2-5 MG/DAY
     Route: 065
     Dates: start: 19990101, end: 20090101
  6. PREDNISONE [Concomitant]
     Dosage: DOSE TAPERED
     Route: 065
     Dates: start: 20090101, end: 20090301
  7. VOLTAREN [Concomitant]
     Dosage: 50 MG AS NEEDED
     Route: 054
  8. LOXONIN [Concomitant]
     Route: 048
  9. NICHOLASE [Concomitant]
     Route: 048
  10. RHEUMATREX [Concomitant]
     Route: 048
     Dates: start: 20090501
  11. ALLOPURINOL [Concomitant]
     Route: 048
  12. INDOMETHACIN [Concomitant]
     Dosage: UNSPECIFIED
     Route: 061

REACTIONS (22)
  - ABDOMINAL PAIN [None]
  - ANAEMIA [None]
  - ARTHROPOD BITE [None]
  - ATRIOVENTRICULAR DISSOCIATION [None]
  - BRADYCARDIA [None]
  - CARDIAC AMYLOIDOSIS [None]
  - CARDIO-RESPIRATORY ARREST [None]
  - CARDITIS [None]
  - CELLULITIS [None]
  - DEVICE RELATED INFECTION [None]
  - DYSARTHRIA [None]
  - HAEMORRHAGE [None]
  - HAEMORRHOIDAL HAEMORRHAGE [None]
  - INFLAMMATION [None]
  - MALAISE [None]
  - METABOLIC ACIDOSIS [None]
  - PAIN [None]
  - RENAL FAILURE ACUTE [None]
  - SEPSIS [None]
  - SEPTIC SHOCK [None]
  - STAPHYLOCOCCAL INFECTION [None]
  - VENTRICULAR TACHYCARDIA [None]
